FAERS Safety Report 8760831 (Version 2)
Quarter: 2012Q4

REPORT INFORMATION
  Report Type: 
  Country: US (occurrence: US)
  Receive Date: 20120829
  Receipt Date: 20120927
  Transmission Date: 20130627
  Serious: Yes (Death, Hospitalization, Other)
  Sender: FDA-Public Use
  Company Number: US-ELI_LILLY_AND_COMPANY-US201208007681

PATIENT
  Age: 60 Year
  Sex: Male
  Weight: 215.42 kg

DRUGS (5)
  1. HUMULIN REGULAR [Suspect]
     Indication: DIABETES MELLITUS
     Dosage: 100 u, each morning
     Route: 058
  2. HUMULIN REGULAR [Suspect]
     Dosage: 120 u, each evening
     Route: 058
  3. HUMALOG LISPRO [Suspect]
     Indication: DIABETES MELLITUS
     Dosage: 4 u, qd
     Route: 058
  4. HUMALOG LISPRO [Suspect]
     Dosage: 40 u, single
     Route: 058
  5. GLUCAGON [Suspect]
     Indication: HYPOGLYCAEMIA
     Dosage: UNK, unknown

REACTIONS (12)
  - Cardiac arrest [Fatal]
  - Blood glucose decreased [Unknown]
  - Unresponsive to stimuli [Unknown]
  - Myocardial infarction [Unknown]
  - Cardiomegaly [Not Recovered/Not Resolved]
  - Coronary artery disease [Not Recovered/Not Resolved]
  - Renal artery arteriosclerosis [Not Recovered/Not Resolved]
  - Diabetic nephropathy [Not Recovered/Not Resolved]
  - Hepatic steatosis [Not Recovered/Not Resolved]
  - Thyroid cancer [Not Recovered/Not Resolved]
  - Obesity [Not Recovered/Not Resolved]
  - Incorrect dose administered [Unknown]
